FAERS Safety Report 20650334 (Version 3)
Quarter: 2024Q1

REPORT INFORMATION
  Report Type: Spontaneous
  Country: FR (occurrence: FR)
  Receive Date: 20220329
  Receipt Date: 20240313
  Transmission Date: 20240409
  Serious: Yes (Other)
  Sender: FDA-Public Use
  Company Number: FR-ADIENNEP-2022AD000130

PATIENT
  Age: 37 Year
  Sex: Male

DRUGS (13)
  1. MYCOPHENOLATE MOFETIL [Suspect]
     Active Substance: MYCOPHENOLATE MOFETIL
     Indication: Prophylaxis against graft versus host disease
     Dosage: 3 MILLIGRAM/KILOGRAM, QD, 3 MG/KG, PER DAY
     Route: 065
  2. FLUDARABINE [Suspect]
     Active Substance: FLUDARABINE PHOSPHATE
     Indication: Cord blood transplant therapy
     Dosage: 40 MILLIGRAM/SQ. METER
     Route: 042
  3. FLUDARABINE [Suspect]
     Active Substance: FLUDARABINE PHOSPHATE
     Indication: Bone marrow conditioning regimen
  4. BUSULFAN [Suspect]
     Active Substance: BUSULFAN
     Indication: Cord blood transplant therapy
     Dosage: 3.2 MILLIGRAM/KILOGRAM
     Route: 042
  5. BUSULFAN [Suspect]
     Active Substance: BUSULFAN
     Indication: Bone marrow conditioning regimen
     Dosage: 3 MILLIGRAM/KILOGRAM
     Route: 042
  6. GEMCITABINE [Suspect]
     Active Substance: GEMCITABINE
     Indication: Hodgkin^s disease
     Dosage: 800 MILLIGRAM/SQ. METER, ON DAYS 1 AND 8 EVERY 21 DAYS
     Route: 042
     Dates: start: 201903
  7. CYCLOSPORINE [Suspect]
     Active Substance: CYCLOSPORINE
     Indication: Prophylaxis against graft versus host disease
     Dosage: 3 MILLIGRAM/KILOGRAM, QD
     Route: 042
  8. TEPADINA [Suspect]
     Active Substance: THIOTEPA
     Indication: Cord blood transplant therapy
     Dosage: 5 MILLIGRAM/KILOGRAM
     Route: 042
  9. TEPADINA [Suspect]
     Active Substance: THIOTEPA
     Indication: Neoplasm malignant
  10. THYMOGLOBULIN [Suspect]
     Active Substance: LAPINE T-LYMPHOCYTE IMMUNE GLOBULIN
     Indication: Cord blood transplant therapy
     Dosage: 5 MILLIGRAM/KILOGRAM
     Route: 042
  11. THYMOGLOBULIN [Suspect]
     Active Substance: LAPINE T-LYMPHOCYTE IMMUNE GLOBULIN
     Indication: Bone marrow conditioning regimen
  12. DOXORUBICIN [Suspect]
     Active Substance: DOXORUBICIN
     Indication: Hodgkin^s disease
     Dosage: 10 MILLIGRAM/SQ. METER, ON DAYS 1 AND 8 EVERY 21 DAYS
     Route: 042
  13. VINORELBINE [Suspect]
     Active Substance: VINORELBINE TARTRATE
     Indication: Hodgkin^s disease
     Dosage: 15 MILLIGRAM/SQ. METER, ON DAYS 1 AND 8 EVERY 21 DAYS
     Route: 042
     Dates: start: 201903

REACTIONS (7)
  - Neck pain [Unknown]
  - Retinopathy haemorrhagic [Recovered/Resolved]
  - Hyperfibrinogenaemia [Recovering/Resolving]
  - Headache [Unknown]
  - Thrombocytopenia [Recovered/Resolved]
  - Off label use [Unknown]
  - Product use in unapproved indication [Unknown]
